FAERS Safety Report 4411070-9 (Version None)
Quarter: 2004Q2

REPORT INFORMATION
  Report Type: 
  Country: None (occurrence: None)
  Receive Date: 20040630
  Receipt Date: 20040512
  Transmission Date: 20050107
  Serious: No
  Sender: FDA-Public Use
  Company Number: 04P-163-0260560-00

PATIENT
  Age: 72 Year
  Sex: Female
  Weight: 62.5964 kg

DRUGS (5)
  1. HUMIRA [Suspect]
     Indication: RHEUMATOID ARTHRITIS
     Dosage: 40 MG, 1 IN 2 WK, SUBCUTANEOUS
     Route: 058
     Dates: start: 20030101, end: 20030901
  2. LEFLUNOMIDE [Concomitant]
  3. PREDNSIONE [Concomitant]
  4. QUINAPRIL HYDROCHLORIDE [Concomitant]
  5. MULTI-VITAMINS [Concomitant]

REACTIONS (1)
  - KIDNEY INFECTION [None]
